FAERS Safety Report 6533340-0 (Version None)
Quarter: 2010Q1

REPORT INFORMATION
  Report Type: 
  Country: None (occurrence: None)
  Receive Date: 20100111
  Receipt Date: 20100106
  Transmission Date: 20100710
  Serious: Yes (Other)
  Sender: FDA-Public Use
  Company Number: B0599666A

PATIENT
  Sex: Male
  Weight: 20 kg

DRUGS (6)
  1. RELENZA [Suspect]
     Indication: INFLUENZA
     Dosage: 10MG TWICE PER DAY
     Route: 055
     Dates: start: 20091019
  2. ALESION [Concomitant]
     Indication: HOUSE DUST ALLERGY
     Dosage: 10MG PER DAY
     Route: 048
     Dates: start: 20091019
  3. DASEN [Concomitant]
     Indication: COUGH
     Dosage: 20MG PER DAY
     Route: 048
     Dates: start: 20091019
  4. HUSTAZOL [Concomitant]
     Indication: COUGH
     Route: 048
     Dates: start: 20091019
  5. BIO THREE [Concomitant]
     Route: 048
     Dates: start: 20091019
  6. HOKUNALIN [Concomitant]
     Indication: COUGH
     Route: 048
     Dates: start: 20091019

REACTIONS (5)
  - ABNORMAL BEHAVIOUR [None]
  - DELIRIUM [None]
  - HALLUCINATION, AUDITORY [None]
  - HALLUCINATION, VISUAL [None]
  - RESTLESSNESS [None]
